FAERS Safety Report 8845228 (Version 1)
Quarter: 2012Q4

REPORT INFORMATION
  Report Type: 
  Country: NL (occurrence: NL)
  Receive Date: 20121017
  Receipt Date: 20121017
  Transmission Date: 20130627
  Serious: Yes (Hospitalization)
  Sender: FDA-Public Use
  Company Number: NL-PFIZER INC-2012253247

PATIENT
  Sex: Female
  Weight: 105 kg

DRUGS (5)
  1. GENOTROPIN PEN [Suspect]
     Dosage: 1.2 mg, 7/wk
     Route: 058
     Dates: start: 20070322
  2. CORTISONE ACETATE [Concomitant]
     Indication: ADRENAL INSUFFICIENCY
     Dosage: UNK
     Dates: start: 19940101
  3. DILTHIAZEM [Concomitant]
     Dosage: UNK
     Dates: start: 20070322
  4. DESMOPRESSIN INTRANASAL [Concomitant]
     Indication: BLOOD ANTIDIURETIC HORMONE DECREASED
     Dosage: UNK
     Dates: start: 20070322
  5. FERO-GRADUMET [Concomitant]
     Indication: ANAEMIA
     Dosage: UNK
     Dates: start: 20070322, end: 20080313

REACTIONS (1)
  - Abdominal wall disorder [Unknown]
